FAERS Safety Report 18396291 (Version 1)
Quarter: 2020Q4

REPORT INFORMATION
  Report Type: Other
  Country: US (occurrence: US)
  Receive Date: 20201019
  Receipt Date: 20201019
  Transmission Date: 20210114
  Serious: Yes (Death)
  Sender: FDA-Public Use
  Company Number: US-ROCHE-2691208

PATIENT
  Age: 59 Year

DRUGS (2)
  1. OCREVUS [Suspect]
     Active Substance: OCRELIZUMAB
     Indication: PRIMARY PROGRESSIVE MULTIPLE SCLEROSIS
     Dosage: DATE OF TREATMENT: 25/AUG/2017
     Route: 065
     Dates: start: 20170811
  2. OCREVUS [Suspect]
     Active Substance: OCRELIZUMAB
     Dosage: DATE OF TREATMENT: 28/SEP/2018
     Route: 065
     Dates: start: 20180309

REACTIONS (1)
  - Death [Fatal]

NARRATIVE: CASE EVENT DATE: 20190912
